FAERS Safety Report 16659711 (Version 1)
Quarter: 2019Q3

REPORT INFORMATION
  Report Type: Spontaneous
  Country: US (occurrence: US)
  Receive Date: 20190802
  Receipt Date: 20190802
  Transmission Date: 20191004
  Serious: No
  Sender: FDA-Public Use
  Company Number: US-ASTRAZENECA-2019SF06707

PATIENT
  Age: 53 Year
  Sex: Female

DRUGS (11)
  1. NEXIUM [Suspect]
     Active Substance: ESOMEPRAZOLE MAGNESIUM
     Route: 048
  2. KLONOPIN [Concomitant]
     Active Substance: CLONAZEPAM
  3. SINGULAIR [Concomitant]
     Active Substance: MONTELUKAST SODIUM
  4. LODINE [Concomitant]
     Active Substance: ETODOLAC
     Dates: start: 201903
  5. PERCOCET [Concomitant]
     Active Substance: ACETAMINOPHEN\OXYCODONE HYDROCHLORIDE
  6. REGLAN [Concomitant]
     Active Substance: METOCLOPRAMIDE HYDROCHLORIDE
  7. ROBAXIN [Concomitant]
     Active Substance: METHOCARBAMOL
  8. AMITRIPTYLINE [Suspect]
     Active Substance: AMITRIPTYLINE
     Dates: start: 20190318
  9. TOPAMAX [Concomitant]
     Active Substance: TOPIRAMATE
  10. BOTOX [Suspect]
     Active Substance: ONABOTULINUMTOXINA
     Indication: MIGRAINE
     Route: 030
     Dates: start: 20190221
  11. FIORICET [Concomitant]
     Active Substance: ACETAMINOPHEN\BUTALBITAL\CAFFEINE

REACTIONS (17)
  - Pruritus [Unknown]
  - Concussion [Unknown]
  - Migraine [Unknown]
  - Jaw fracture [Unknown]
  - Hypersensitivity [Not Recovered/Not Resolved]
  - Weight increased [Unknown]
  - Depression [Unknown]
  - Visual impairment [Unknown]
  - Arthropathy [Unknown]
  - Temporomandibular joint syndrome [Unknown]
  - Pain in jaw [Unknown]
  - Seasonal allergy [Not Recovered/Not Resolved]
  - Feeding disorder [Unknown]
  - Anxiety [Unknown]
  - Nausea [Unknown]
  - Post-traumatic headache [Unknown]
  - Off label use [Unknown]

NARRATIVE: CASE EVENT DATE: 2015
